FAERS Safety Report 6465665-1 (Version None)
Quarter: 2009Q4

REPORT INFORMATION
  Report Type: 
  Country: None (occurrence: None)
  Receive Date: 20091201
  Receipt Date: 20081105
  Transmission Date: 20100525
  Serious: No
  Sender: FDA-Public Use
  Company Number: US-AMGEN-KDL317513

PATIENT
  Sex: Female

DRUGS (1)
  1. ENBREL [Suspect]
     Indication: RHEUMATOID ARTHRITIS
     Route: 058
     Dates: start: 20020329

REACTIONS (6)
  - ANIMAL BITE [None]
  - ARTHRALGIA [None]
  - INFECTED BITES [None]
  - MALAISE [None]
  - RASH GENERALISED [None]
  - TENDON RUPTURE [None]
